FAERS Safety Report 9550750 (Version 3)
Quarter: 2014Q3

REPORT INFORMATION
  Report Type: Spontaneous
  Country: US (occurrence: US)
  Receive Date: 20130924
  Receipt Date: 20140924
  Transmission Date: 20150326
  Serious: No
  Sender: FDA-Public Use
  Company Number: US-SANOFI-AVENTIS-2013SA047508

PATIENT
  Sex: Female

DRUGS (1)
  1. AUBAGIO [Suspect]
     Active Substance: TERIFLUNOMIDE
     Indication: MULTIPLE SCLEROSIS
     Dosage: PRODUCT STOPPED TWO WEEKS AGO.
     Route: 048
     Dates: start: 20130425

REACTIONS (6)
  - Fatigue [Unknown]
  - Paraesthesia [Unknown]
  - Blood triglycerides increased [Unknown]
  - Drug dose omission [Unknown]
  - Discomfort [Unknown]
  - Anaemia [Unknown]
